FAERS Safety Report 7948526-8 (Version None)
Quarter: 2011Q4

REPORT INFORMATION
  Report Type: 
  Country: None (occurrence: None)
  Receive Date: 20111130
  Receipt Date: 20111125
  Transmission Date: 20120403
  Serious: Yes (Hospitalization)
  Sender: FDA-Public Use
  Company Number: FR-SANOFI-AVENTIS-2011SA077488

PATIENT
  Age: 16 Year
  Sex: Male

DRUGS (3)
  1. CLAFORAN [Suspect]
     Route: 042
     Dates: start: 20110921, end: 20111013
  2. FLAGYL [Concomitant]
     Route: 042
     Dates: start: 20111013, end: 20111013
  3. POLARAMINE [Concomitant]
     Indication: PROPHYLAXIS
     Route: 048
     Dates: start: 20111012, end: 20111012

REACTIONS (3)
  - DYSGEUSIA [None]
  - ABDOMINAL PAIN [None]
  - URTICARIA [None]
